FAERS Safety Report 6287409-9 (Version None)
Quarter: 2009Q3

REPORT INFORMATION
  Report Type: 
  Country: None (occurrence: None)
  Receive Date: 20090727
  Receipt Date: 20090715
  Transmission Date: 20100115
  Serious: Yes (Life-Threatening, Hospitalization)
  Sender: FDA-Public Use
  Company Number: 2009-02877

PATIENT
  Age: 62 Year
  Sex: Male

DRUGS (6)
  1. VELCADE [Suspect]
     Indication: MULTIPLE MYELOMA
     Dates: start: 20090421, end: 20090428
  2. DEXAMETHASONE(DEXAMETHASONE) S [Suspect]
     Indication: MULTIPLE MYELOMA
     Dates: end: 20090428
  3. ENALAPRIL MALEATE [Concomitant]
  4. ASPIRIN [Concomitant]
  5. ACETAMINOPHEN W/ PROPOXYPHENE HCL [Concomitant]
  6. AMLODIPINE BESYLATE [Concomitant]

REACTIONS (1)
  - PANCREATITIS ACUTE [None]
